FAERS Safety Report 5260896-0 (Version None)
Quarter: 2007Q1

REPORT INFORMATION
  Report Type: 
  Country: None (occurrence: None)
  Receive Date: 20070309
  Receipt Date: 20070227
  Transmission Date: 20070707
  Serious: Yes (Hospitalization, Other)
  Sender: FDA-Public Use
  Company Number: US-ELI_LILLY_AND_COMPANY-US200606002825

PATIENT
  Age: 58 Year
  Sex: Male
  Weight: 88.435 kg

DRUGS (4)
  1. ZYPREXA [Suspect]
     Indication: DEPRESSION
     Dates: start: 19990101, end: 20030101
  2. ZOLOFT [Concomitant]
     Indication: DEPRESSION
     Dates: start: 20010501, end: 20020101
  3. LUVOX [Concomitant]
     Indication: DEPRESSION
     Dates: start: 19990101, end: 20010501
  4. TENORMIN [Concomitant]
     Dates: start: 19880101

REACTIONS (13)
  - ANGIOPLASTY [None]
  - DEPRESSION [None]
  - DIABETIC COMA [None]
  - DIABETIC KETOACIDOSIS [None]
  - DIABETIC NEUROPATHY [None]
  - HEPATITIS VIRAL [None]
  - HYPERTENSION [None]
  - MENTAL IMPAIRMENT [None]
  - PAIN [None]
  - TARDIVE DYSKINESIA [None]
  - TOOTH DISORDER [None]
  - TREMOR [None]
  - WEIGHT INCREASED [None]
